FAERS Safety Report 17857137 (Version 1)
Quarter: 2020Q2

REPORT INFORMATION
  Report Type: Spontaneous
  Country: US (occurrence: US)
  Receive Date: 20200603
  Receipt Date: 20200603
  Transmission Date: 20200714
  Serious: No
  Sender: FDA-Public Use
  Company Number: US-BAUSCH-BL-2020-015283

PATIENT
  Age: 90 Year
  Sex: Female

DRUGS (3)
  1. LATANOPROST. [Suspect]
     Active Substance: LATANOPROST
     Indication: GLAUCOMA
     Dosage: BEGAN USING LATANOPROST MANY YEARS AGO
     Route: 047
  2. ARTIFICIAL TEARS LUBRICANT EYE DROPS [Suspect]
     Active Substance: GLYCERIN\PROPYLENE GLYCOL
     Indication: DRY EYE
     Dosage: 1 DROP IN BOTH EYES UP TO 6 TIMES DAILY AS NEEDED
     Route: 047
     Dates: start: 20200521
  3. SYSTANE (HYPROMELLOSE 2910 (4000 MPA.S)) [Suspect]
     Active Substance: HYPROMELLOSE 2910 (4000 MPA.S)
     Indication: DRY EYE
     Route: 047
     Dates: start: 2020, end: 2020

REACTIONS (1)
  - Vision blurred [Unknown]
